FAERS Safety Report 22003694 (Version 2)
Quarter: 2023Q2

REPORT INFORMATION
  Report Type: Spontaneous
  Country: RU (occurrence: RU)
  Receive Date: 20230217
  Receipt Date: 20230630
  Transmission Date: 20230722
  Serious: No
  Sender: FDA-Public Use
  Company Number: RU-GALDERMA-RU2023001911

PATIENT

DRUGS (2)
  1. BENZOYL PEROXIDE [Suspect]
     Active Substance: BENZOYL PEROXIDE
     Indication: Acne
     Dosage: 1 DOSAGE FORM, QD, IN THE EVENING
     Route: 061
     Dates: start: 202301, end: 202301
  2. ZINC HYALURONATE [Concomitant]
     Indication: Acne
     Dosage: 1 DOSAGE FORM, QD, IN THE MORNING
     Route: 065
     Dates: start: 202208

REACTIONS (7)
  - Erythema of eyelid [Recovered/Resolved]
  - Skin swelling [Recovered/Resolved]
  - Application site oedema [Recovered/Resolved]
  - Skin burning sensation [Recovered/Resolved]
  - Pain of skin [Recovered/Resolved]
  - Dermatitis contact [Recovered/Resolved]
  - Application site erythema [Recovered/Resolved]

NARRATIVE: CASE EVENT DATE: 20230101
